FAERS Safety Report 5728411-2 (Version None)
Quarter: 2008Q2

REPORT INFORMATION
  Report Type: 
  Country: None (occurrence: None)
  Receive Date: 20080506
  Receipt Date: 20080502
  Transmission Date: 20081010
  Serious: Yes (Life-Threatening)
  Sender: FDA-Public Use
  Company Number: JP-BRISTOL-MYERS SQUIBB COMPANY-14140412

PATIENT
  Age: 38 Year
  Sex: Male

DRUGS (4)
  1. BARACLUDE [Suspect]
     Indication: HEPATIC CIRRHOSIS
     Route: 048
     Dates: start: 20061201
  2. DEPAS [Concomitant]
     Route: 048
     Dates: start: 19990319
  3. MARZULENE-S [Concomitant]
     Route: 048
     Dates: start: 20030328
  4. URSO 250 [Concomitant]
     Route: 048
     Dates: start: 20050401

REACTIONS (1)
  - HEPATIC NEOPLASM MALIGNANT [None]
